FAERS Safety Report 15825029 (Version 1)
Quarter: 2019Q1

REPORT INFORMATION
  Report Type: Spontaneous
  Country: US (occurrence: US)
  Receive Date: 20190114
  Receipt Date: 20190114
  Transmission Date: 20190417
  Serious: Yes (Disabling)
  Sender: FDA-Public Use
  Company Number: None

PATIENT
  Age: 54 Year
  Sex: Female
  Weight: 63 kg

DRUGS (3)
  1. CIPROFLOXACIN. [Suspect]
     Active Substance: CIPROFLOXACIN
     Indication: DIVERTICULITIS
     Route: 048
     Dates: start: 20181109, end: 20181112
  2. TURMERIC [Concomitant]
     Active Substance: HERBALS\TURMERIC
  3. MELATONIN [Concomitant]
     Active Substance: MELATONIN

REACTIONS (16)
  - Anxiety [None]
  - Feeling abnormal [None]
  - Pain in extremity [None]
  - Feeling guilty [None]
  - Amnesia [None]
  - Back pain [None]
  - Tinnitus [None]
  - Panic attack [None]
  - Tunnel vision [None]
  - Depression [None]
  - Fibromyalgia [None]
  - Burning sensation [None]
  - Chest pain [None]
  - Palpitations [None]
  - Dyspnoea [None]
  - Chronic fatigue syndrome [None]

NARRATIVE: CASE EVENT DATE: 20181109
